FAERS Safety Report 17768917 (Version 3)
Quarter: 2020Q4

REPORT INFORMATION
  Report Type: Spontaneous
  Country: US (occurrence: US)
  Receive Date: 20200512
  Receipt Date: 20201221
  Transmission Date: 20210113
  Serious: Yes (Other)
  Sender: FDA-Public Use
  Company Number: US-BIOGEN-2020BI00865991

PATIENT
  Age: 36 Year
  Sex: Female

DRUGS (3)
  1. TECFIDERA [Suspect]
     Active Substance: DIMETHYL FUMARATE
     Dosage: X 23 DAYS AFTER 120MG DOSE
     Route: 048
     Dates: start: 202004
  2. TECFIDERA [Suspect]
     Active Substance: DIMETHYL FUMARATE
     Indication: MULTIPLE SCLEROSIS
     Dosage: X 7 DAYS
     Route: 048
     Dates: start: 20200406
  3. TECFIDERA [Suspect]
     Active Substance: DIMETHYL FUMARATE
     Dosage: MAINTENANCE DOSE
     Route: 048
     Dates: start: 20200407, end: 20200930

REACTIONS (10)
  - Blindness [Unknown]
  - Vomiting [Unknown]
  - Depression [Unknown]
  - Drug ineffective [Unknown]
  - Eructation [Recovered/Resolved]
  - Abdominal distension [Recovered/Resolved]
  - Pain [Unknown]
  - Diarrhoea [Unknown]
  - Nausea [Recovered/Resolved]
  - Gait inability [Unknown]

NARRATIVE: CASE EVENT DATE: 202004
